FAERS Safety Report 5971320-4 (Version None)
Quarter: 2008Q4

REPORT INFORMATION
  Report Type: 
  Country: None (occurrence: None)
  Receive Date: 20081128
  Receipt Date: 20081120
  Transmission Date: 20090506
  Serious: Yes (Hospitalization)
  Sender: FDA-Public Use
  Company Number: FR-PFIZER INC-2008099100

PATIENT
  Sex: Female

DRUGS (5)
  1. SOLU-MEDROL [Suspect]
     Indication: RECTAL CANCER
     Route: 042
     Dates: start: 20080908, end: 20080922
  2. ELOXATIN [Suspect]
     Indication: RECTAL CANCER
     Route: 042
     Dates: start: 20080908, end: 20080101
  3. ZOPHREN [Suspect]
     Indication: RECTAL CANCER
     Route: 042
     Dates: start: 20080908
  4. DRUG, UNSPECIFIED [Concomitant]
  5. LEUCOVORIN CALCIUM [Concomitant]
     Dates: start: 20080908

REACTIONS (1)
  - URTICARIA [None]
